FAERS Safety Report 21763211 (Version 1)
Quarter: 2022Q4

REPORT INFORMATION
  Report Type: Report from Study
  Country: US (occurrence: US)
  Receive Date: 20221221
  Receipt Date: 20221221
  Transmission Date: 20230112
  Serious: No
  Sender: FDA-Public Use
  Company Number: US-ABBVIE-4199041

PATIENT
  Sex: Female

DRUGS (1)
  1. HUMIRA [Suspect]
     Active Substance: ADALIMUMAB
     Indication: Rheumatoid arthritis
     Route: 058

REACTIONS (5)
  - COVID-19 [Recovering/Resolving]
  - Pain [Unknown]
  - Sensitivity to weather change [Unknown]
  - Body temperature decreased [Recovering/Resolving]
  - Rheumatoid arthritis [Unknown]
